FAERS Safety Report 13744696 (Version 1)
Quarter: 2017Q3

REPORT INFORMATION
  Report Type: Spontaneous
  Country: US (occurrence: US)
  Receive Date: 20170711
  Receipt Date: 20170711
  Transmission Date: 20171127
  Serious: Yes (Life-Threatening, Hospitalization, Disabling, Other)
  Sender: FDA-Public Use
  Company Number: None

PATIENT
  Age: 35 Year
  Sex: Female
  Weight: 56.25 kg

DRUGS (2)
  1. LORAZEPAM. [Suspect]
     Active Substance: LORAZEPAM
     Indication: ANXIETY
     Dosage: ?          OTHER STRENGTH:MG;QUANTITY:1 TABLET(S);?
     Route: 048
     Dates: start: 20130701, end: 20150101
  2. MUTI VITAMIN [Concomitant]

REACTIONS (22)
  - Impaired driving ability [None]
  - Decreased activity [None]
  - Feeding disorder [None]
  - Road traffic accident [None]
  - Screaming [None]
  - Tremor [None]
  - Agoraphobia [None]
  - Withdrawal syndrome [None]
  - Hyperhidrosis [None]
  - Feeling of despair [None]
  - Anxiety [None]
  - Heart rate increased [None]
  - Vomiting [None]
  - Insomnia [None]
  - Disturbance in attention [None]
  - Drug dependence [None]
  - Paranoia [None]
  - Restlessness [None]
  - Impaired work ability [None]
  - Therapy change [None]
  - Gait inability [None]
  - Pain [None]

NARRATIVE: CASE EVENT DATE: 20130701
